FAERS Safety Report 6704082-3 (Version None)
Quarter: 2010Q2

REPORT INFORMATION
  Report Type: 
  Country: None (occurrence: None)
  Receive Date: 20100430
  Receipt Date: 20100420
  Transmission Date: 20101027
  Serious: Yes (Other)
  Sender: FDA-Public Use
  Company Number: GB-JNJCH-2010009758

PATIENT
  Sex: Female

DRUGS (1)
  1. LISTERINE [Suspect]
     Indication: DRUG USE FOR UNKNOWN INDICATION
     Dosage: TEXT:UNKNOWN
     Route: 048

REACTIONS (6)
  - BREATH ALCOHOL TEST POSITIVE [None]
  - BREATH ODOUR [None]
  - DRUG TOXICITY [None]
  - FALL [None]
  - IMPAIRED DRIVING ABILITY [None]
  - SKIN LACERATION [None]
